FAERS Safety Report 11460161 (Version 1)
Quarter: 2015Q3

REPORT INFORMATION
  Report Type: Spontaneous
  Country: US (occurrence: US)
  Receive Date: 20150904
  Receipt Date: 20150904
  Transmission Date: 20151125
  Serious: Yes (Hospitalization)
  Sender: FDA-Public Use
  Company Number: US-PFIZER INC-2015286511

PATIENT
  Age: 23 Year
  Sex: Male

DRUGS (9)
  1. METHSUXIMIDE [Concomitant]
     Active Substance: METHSUXIMIDE
     Indication: GENERALISED TONIC-CLONIC SEIZURE
     Dosage: 150 MG, 4X/DAY
     Dates: end: 197610
  2. PHENYTOIN. [Suspect]
     Active Substance: PHENYTOIN
     Indication: GENERALISED TONIC-CLONIC SEIZURE
     Dosage: 100 MG, 3X/DAY
  3. PRIMIDONE. [Concomitant]
     Active Substance: PRIMIDONE
     Indication: PETIT MAL EPILEPSY
  4. METHSUXIMIDE [Concomitant]
     Active Substance: METHSUXIMIDE
     Indication: PETIT MAL EPILEPSY
  5. PHENOBARBITAL. [Concomitant]
     Active Substance: PHENOBARBITAL
     Indication: GENERALISED TONIC-CLONIC SEIZURE
     Dosage: 30  MG, 2X/DAY
  6. PHENOBARBITAL. [Concomitant]
     Active Substance: PHENOBARBITAL
     Indication: PETIT MAL EPILEPSY
     Dosage: 60 MG, Q AM
     Dates: start: 197610
  7. PRIMIDONE. [Concomitant]
     Active Substance: PRIMIDONE
     Indication: GENERALISED TONIC-CLONIC SEIZURE
     Dosage: 250 MG, 3X/DAY
  8. PHENYTOIN. [Suspect]
     Active Substance: PHENYTOIN
     Indication: PETIT MAL EPILEPSY
  9. PHENOBARBITAL. [Concomitant]
     Active Substance: PHENOBARBITAL
     Dosage: 120 MG, Q HS
     Dates: start: 197610

REACTIONS (3)
  - Pericarditis [Unknown]
  - Systemic lupus erythematosus [Recovered/Resolved]
  - Seizure [Recovered/Resolved]

NARRATIVE: CASE EVENT DATE: 1976
